FAERS Safety Report 5391177-2 (Version None)
Quarter: 2007Q3

REPORT INFORMATION
  Report Type: 
  Country: None (occurrence: None)
  Receive Date: 20070719
  Receipt Date: 20070711
  Transmission Date: 20080115
  Serious: Yes (Other)
  Sender: FDA-Public Use
  Company Number: PHRM2007FR01841

PATIENT

DRUGS (1)
  1. EXJADE [Suspect]
     Route: 048

REACTIONS (2)
  - OPTIC NEUROPATHY [None]
  - PAPILLOEDEMA [None]
